FAERS Safety Report 7163414-5 (Version None)
Quarter: 2010Q4

REPORT INFORMATION
  Report Type: 
  Country: None (occurrence: None)
  Receive Date: 20101215
  Receipt Date: 20100415
  Transmission Date: 20110411
  Serious: Yes (Other)
  Sender: FDA-Public Use
  Company Number: DE-PFIZER INC-2010032064

PATIENT
  Age: 66 Year
  Sex: Male
  Weight: 68 kg

DRUGS (4)
  1. LYRICA [Suspect]
     Indication: NEURALGIA
     Dosage: 300 MG, 1X/DAY
     Route: 048
     Dates: start: 20090601, end: 20100323
  2. PALLADONE [Concomitant]
     Indication: NEURALGIA
     Dosage: 16 MG DAILY
     Route: 048
     Dates: start: 20090601
  3. DECORTIN [Concomitant]
     Indication: RHEUMATOID ARTHRITIS
     Dosage: 10 MG DAILY
     Route: 048
  4. ARAVA [Concomitant]
     Indication: RHEUMATOID ARTHRITIS
     Dosage: 20 MG DAILY
     Route: 048
     Dates: start: 20090901

REACTIONS (2)
  - EYE OEDEMA [None]
  - OEDEMA PERIPHERAL [None]
